FAERS Safety Report 12532132 (Version 1)
Quarter: 2016Q3

REPORT INFORMATION
  Report Type: Report from Study
  Country: GB (occurrence: GB)
  Receive Date: 20160706
  Receipt Date: 20160706
  Transmission Date: 20161109
  Serious: No
  Sender: FDA-Public Use
  Company Number: GB-SAOL THERAPEUTICS-2016SAO00109

PATIENT
  Age: 51 Year
  Sex: Female

DRUGS (47)
  1. LIORESAL [Suspect]
     Active Substance: BACLOFEN
     Dosage: 267.82 ?G, \DAY
     Route: 042
     Dates: start: 20150714, end: 20150714
  2. LIORESAL [Suspect]
     Active Substance: BACLOFEN
     Dosage: 465.8 ?G, \DAY
     Route: 042
     Dates: start: 20150721, end: 20150721
  3. LIORESAL [Suspect]
     Active Substance: BACLOFEN
     Dosage: 615.5 ?G, \DAY
     Route: 042
     Dates: start: 20150723, end: 20150723
  4. BACLOFEN. [Concomitant]
     Active Substance: BACLOFEN
     Dosage: 30 MG, 3X/DAY
     Route: 048
     Dates: start: 20150713, end: 20150714
  5. SALBUTAMOL [Concomitant]
     Active Substance: ALBUTEROL
     Indication: ASTHMA
     Dosage: 100 ?G, AS NEEDED
     Route: 055
     Dates: start: 20110719
  6. FLUTICASONE [Concomitant]
     Active Substance: FLUTICASONE\FLUTICASONE PROPIONATE
     Indication: ASTHMA
     Dosage: 500 ?G, 2X/DAY
     Route: 055
     Dates: start: 20110719
  7. SALMETEROL [Concomitant]
     Active Substance: SALMETEROL
     Indication: ASTHMA
     Dosage: 50 ?G, 2X/DAY
     Route: 055
     Dates: start: 20110719
  8. VITAMIN-B [Concomitant]
     Dosage: 1 TABLETS, \DAY
     Route: 048
     Dates: start: 20110719
  9. LIORESAL [Suspect]
     Active Substance: BACLOFEN
     Dosage: 133.14 ?G, \DAY
     Route: 042
     Dates: start: 20150706, end: 20150706
  10. LIORESAL [Suspect]
     Active Substance: BACLOFEN
     Dosage: 87.67 ?G, \DAY
     Route: 042
     Dates: start: 20150626, end: 20150626
  11. BACLOFEN. [Concomitant]
     Active Substance: BACLOFEN
     Dosage: 10 MG, 2X/DAY
     Route: 048
     Dates: start: 20150720, end: 20150722
  12. IBUPROFEN. [Concomitant]
     Active Substance: IBUPROFEN
     Indication: ANALGESIC THERAPY
     Dosage: 200 MG, AS NEEDED
     Route: 048
     Dates: start: 20150615, end: 20150616
  13. LIORESAL [Suspect]
     Active Substance: BACLOFEN
     Dosage: 535.6 ?G, \DAY
     Route: 042
     Dates: start: 20150722, end: 20150722
  14. LIORESAL [Suspect]
     Active Substance: BACLOFEN
     Dosage: 153.36 ?G, \DAY
     Route: 042
     Dates: start: 20150707, end: 20150707
  15. BACLOFEN. [Concomitant]
     Active Substance: BACLOFEN
     Indication: MUSCLE SPASTICITY
     Dosage: UNK
     Route: 048
     Dates: start: 20110617, end: 20150713
  16. BACLOFEN. [Concomitant]
     Active Substance: BACLOFEN
     Dosage: 10 MG, 1X/DAY
     Dates: start: 20150722, end: 20150723
  17. TIZANIDINE. [Concomitant]
     Active Substance: TIZANIDINE
     Indication: MUSCLE SPASTICITY
     Dosage: 12 MG, 3X/DAY
     Route: 048
     Dates: start: 20110917, end: 20150713
  18. TIZANIDINE. [Concomitant]
     Active Substance: TIZANIDINE
     Dosage: 8 UNK, UNK
     Route: 048
     Dates: start: 20150715, end: 20150717
  19. TIZANIDINE. [Concomitant]
     Active Substance: TIZANIDINE
     Dosage: UNK
     Route: 048
     Dates: start: 20150720, end: 20150722
  20. LIORESAL [Suspect]
     Active Substance: BACLOFEN
     Indication: MUSCLE SPASTICITY
     Dosage: 57.5 ?G, \DAY
     Route: 042
     Dates: start: 20150616, end: 20150616
  21. LIORESAL [Suspect]
     Active Substance: BACLOFEN
     Dosage: 306.71 ?G, \DAY
     Route: 042
     Dates: start: 20150715, end: 20150715
  22. LIORESAL [Suspect]
     Active Substance: BACLOFEN
     Dosage: 353.36 ?G, \DAY
     Route: 042
     Dates: start: 20150717, end: 20150717
  23. BACLOFEN. [Concomitant]
     Active Substance: BACLOFEN
     Dosage: UNK
     Route: 048
     Dates: start: 20150717, end: 20150720
  24. SIMVASTATIN. [Concomitant]
     Active Substance: SIMVASTATIN
     Indication: HYPERLIPIDAEMIA
     Dosage: 40 MG, 1X/DAY
     Route: 048
     Dates: start: 20090528
  25. TIZANIDINE. [Concomitant]
     Active Substance: TIZANIDINE
     Dosage: UNK
     Route: 048
     Dates: start: 20150713, end: 20150714
  26. LIORESAL [Suspect]
     Active Substance: BACLOFEN
     Dosage: 100.8 ?G, \DAY
     Route: 042
     Dates: start: 20150630, end: 20150630
  27. LIORESAL [Suspect]
     Active Substance: BACLOFEN
     Dosage: 233.5 ?G, \DAY
     Route: 042
     Dates: start: 20150713, end: 20150713
  28. TIZANIDINE. [Concomitant]
     Active Substance: TIZANIDINE
     Dosage: UNK
     Route: 048
     Dates: start: 20150722, end: 20150723
  29. CITALOPRAM HYDROCHLORIDE [Concomitant]
     Active Substance: CITALOPRAM HYDROCHLORIDE
     Dosage: 20 MG, 1X/DAY
     Route: 048
     Dates: start: 20150908
  30. MORPHINE SULFATE. [Concomitant]
     Active Substance: MORPHINE SULFATE
     Indication: ANALGESIC THERAPY
     Dosage: 10 MG, AS NEEDED
     Route: 048
     Dates: start: 20150614, end: 20150615
  31. LIORESAL [Suspect]
     Active Substance: BACLOFEN
     Dosage: 66.19 ?G, \DAY
     Route: 042
     Dates: start: 20150619, end: 20150619
  32. LIORESAL [Suspect]
     Active Substance: BACLOFEN
     Dosage: 76.18 ?G, \DAY
     Route: 042
     Dates: start: 20150623, end: 20150623
  33. LIORESAL [Suspect]
     Active Substance: BACLOFEN
     Dosage: 404.94 ?G, \DAY
     Route: 042
     Dates: start: 20150720, end: 20150720
  34. BACLOFEN. [Concomitant]
     Active Substance: BACLOFEN
     Dosage: UNK
     Route: 048
     Dates: start: 20150714, end: 20150715
  35. BACLOFEN. [Concomitant]
     Active Substance: BACLOFEN
     Dosage: UNK
     Dates: start: 20150715, end: 20150717
  36. ASPIRIN. [Concomitant]
     Active Substance: ASPIRIN
     Indication: CEREBROVASCULAR ACCIDENT
     Dosage: 75 MG, \DAY
     Route: 048
     Dates: start: 20150607
  37. CITALOPRAM HYDROCHLORIDE [Concomitant]
     Active Substance: CITALOPRAM HYDROCHLORIDE
     Indication: DEPRESSED MOOD
     Dosage: 40 MG, 1X/DAY
     Route: 048
     Dates: start: 20140225, end: 20150907
  38. LIORESAL [Suspect]
     Active Substance: BACLOFEN
     Dosage: 115.88 ?G, \DAY
     Route: 042
     Dates: start: 20150703, end: 20150703
  39. LIORESAL [Suspect]
     Active Substance: BACLOFEN
     Dosage: 203.36 ?G, \DAY
     Route: 042
     Dates: start: 20150710, end: 20150710
  40. TOLTERODINE [Concomitant]
     Active Substance: TOLTERODINE
     Indication: URINARY INCONTINENCE
     Dosage: 2 MG, 2X/DAY
     Route: 048
     Dates: start: 20110611
  41. TIZANIDINE. [Concomitant]
     Active Substance: TIZANIDINE
     Dosage: UNK
     Route: 048
     Dates: start: 20110714, end: 20150715
  42. FOLIC ACID. [Concomitant]
     Active Substance: FOLIC ACID
     Dosage: UNK
     Route: 048
     Dates: start: 20110719
  43. LIORESAL [Suspect]
     Active Substance: BACLOFEN
     Dosage: 176.68 ?G, \DAY
     Route: 042
     Dates: start: 20150708, end: 20150708
  44. SENNA [Concomitant]
     Active Substance: SENNA LEAF\SENNOSIDES\SENNOSIDES A AND B
     Indication: CONSTIPATION
     Dosage: 7.5 MG, AS NEEDED
     Route: 048
     Dates: start: 20110818
  45. TIZANIDINE. [Concomitant]
     Active Substance: TIZANIDINE
     Dosage: UNK
     Route: 048
     Dates: start: 20150717, end: 20150720
  46. LIDOCAINE. [Concomitant]
     Active Substance: LIDOCAINE
     Indication: ANALGESIC THERAPY
     Dosage: UNK
     Dates: start: 20150616, end: 20150619
  47. PARACETAMOL [Concomitant]
     Active Substance: ACETAMINOPHEN
     Indication: ANALGESIC THERAPY
     Dosage: 1000 ?G, 4X/DAY
     Route: 048
     Dates: start: 20110719

REACTIONS (3)
  - Productive cough [Recovered/Resolved]
  - Wheezing [Recovered/Resolved]
  - Upper respiratory tract infection [Recovered/Resolved]

NARRATIVE: CASE EVENT DATE: 20151028
